FAERS Safety Report 7486474-0 (Version None)
Quarter: 2011Q2

REPORT INFORMATION
  Report Type: 
  Country: None (occurrence: None)
  Receive Date: 20110517
  Receipt Date: 20110503
  Transmission Date: 20111010
  Serious: Yes (Other)
  Sender: FDA-Public Use
  Company Number: US-BAYER-2011-039180

PATIENT
  Sex: Male

DRUGS (1)
  1. ALEVE (CAPLET) [Suspect]
     Dosage: COUNT SIZE NOT REPORTED
     Route: 048

REACTIONS (2)
  - DRUG HYPERSENSITIVITY [None]
  - DISCOMFORT [None]
